FAERS Safety Report 16315224 (Version 1)
Quarter: 2019Q2

REPORT INFORMATION
  Report Type: Spontaneous
  Country: US (occurrence: US)
  Receive Date: 20190515
  Receipt Date: 20190515
  Transmission Date: 20190711
  Serious: No
  Sender: FDA-Public Use
  Company Number: US-ACTELION-A-NJ2019-189276

PATIENT
  Sex: Female
  Weight: 106.12 kg

DRUGS (1)
  1. OPSUMIT [Suspect]
     Active Substance: MACITENTAN
     Indication: PULMONARY ARTERIAL HYPERTENSION
     Dosage: 10 MG, QD
     Route: 048
     Dates: end: 20190419

REACTIONS (14)
  - Blood pressure decreased [Unknown]
  - Cough [Unknown]
  - Nasal congestion [Unknown]
  - Muscular weakness [Unknown]
  - Disturbance in attention [Unknown]
  - Headache [Unknown]
  - Vomiting [Unknown]
  - Weight increased [Unknown]
  - Influenza like illness [Recovering/Resolving]
  - Fatigue [Unknown]
  - Myofascial spasm [Unknown]
  - Nausea [Unknown]
  - Chest discomfort [Recovering/Resolving]
  - Feeling abnormal [Unknown]
